FAERS Safety Report 5676843-3 (Version None)
Quarter: 2008Q1

REPORT INFORMATION
  Report Type: 
  Country: None (occurrence: None)
  Receive Date: 20080324
  Receipt Date: 20080313
  Transmission Date: 20080703
  Serious: No
  Sender: FDA-Public Use
  Company Number: US-BAYER-200816384NA

PATIENT
  Age: 25 Year
  Sex: Female
  Weight: 91 kg

DRUGS (2)
  1. MIRENA [Suspect]
     Indication: CONTRACEPTION
     Route: 015
     Dates: end: 20080101
  2. VITAMINS [Concomitant]

REACTIONS (5)
  - AMENORRHOEA [None]
  - HAEMOGLOBIN DECREASED [None]
  - OESTROGEN DEFICIENCY [None]
  - POST PROCEDURAL HAEMORRHAGE [None]
  - UTERINE HAEMORRHAGE [None]
